FAERS Safety Report 21090726 (Version 4)
Quarter: 2023Q4

REPORT INFORMATION
  Report Type: Spontaneous
  Country: US (occurrence: US)
  Receive Date: 20220716
  Receipt Date: 20231211
  Transmission Date: 20240110
  Serious: No
  Sender: FDA-Public Use
  Company Number: US-SA-SAC20220713000927

PATIENT
  Sex: Female

DRUGS (1)
  1. AUBAGIO [Suspect]
     Active Substance: TERIFLUNOMIDE
     Indication: Multiple sclerosis
     Dosage: 14MG , QD
     Route: 048
     Dates: start: 20191112

REACTIONS (4)
  - Fall [Recovered/Resolved]
  - Irritability [Recovered/Resolved]
  - Head injury [Unknown]
  - Limb injury [Unknown]
